FAERS Safety Report 6526626-7 (Version None)
Quarter: 2010Q1

REPORT INFORMATION
  Report Type: 
  Country: None (occurrence: None)
  Receive Date: 20100105
  Receipt Date: 20091222
  Transmission Date: 20100710
  Serious: Yes (Hospitalization)
  Sender: FDA-Public Use
  Company Number: FR-AMGEN-US382551

PATIENT
  Sex: Male

DRUGS (8)
  1. ENBREL [Suspect]
     Indication: PSORIATIC ARTHROPATHY
     Route: 058
     Dates: start: 20050331, end: 20090701
  2. NORSET [Suspect]
     Dosage: UNKNOWN
     Route: 048
  3. UN-ALFA [Suspect]
     Dosage: UNKNOWN
     Dates: end: 20090924
  4. STILNOX [Suspect]
     Dosage: UNKNOWN
     Route: 048
  5. LEVOTHYROXINE SODIUM [Suspect]
     Dosage: 75 UG STRENGTH; DOSE UNKNOWN
     Route: 048
  6. CALTRATE 600 [Suspect]
     Dosage: 600 STRENGTH; DOSE UNKNOWN
     Route: 048
     Dates: end: 20090924
  7. TENORMIN [Suspect]
     Dosage: UNKNOWN
     Route: 048
  8. NEXIUM [Suspect]
     Dosage: UNKNOWN
     Route: 048

REACTIONS (2)
  - RENAL FAILURE [None]
  - RENAL TUBULAR DISORDER [None]
